FAERS Safety Report 8848383 (Version 5)
Quarter: 2013Q3

REPORT INFORMATION
  Report Type: Report from Study
  Country: US (occurrence: US)
  Receive Date: 20121018
  Receipt Date: 20130808
  Transmission Date: 20140515
  Serious: No
  Sender: FDA-Public Use
  Company Number: PHEH2012US015203

PATIENT
  Age: 53 Year
  Sex: Male
  Weight: 102.49 kg

DRUGS (6)
  1. GILENYA [Suspect]
     Indication: RELAPSING-REMITTING MULTIPLE SCLEROSIS
     Dosage: 0.5 MG, QD
     Route: 048
     Dates: start: 20120726
  2. NORTRIPTYLINE [Concomitant]
     Dosage: 25 MG, UNK
     Route: 048
     Dates: start: 20100925
  3. LORAZEPAM [Concomitant]
     Dosage: 1 MG, BID
     Route: 048
     Dates: start: 201108
  4. EFFEXOR [Concomitant]
     Route: 048
     Dates: start: 201203
  5. LITHIUM [Concomitant]
     Dosage: 300 MG, TID
     Route: 048
     Dates: start: 201202
  6. VITAMIN D3 [Concomitant]
     Dosage: 1000 U, QD
     Route: 048
     Dates: start: 201003

REACTIONS (1)
  - Fatigue [Not Recovered/Not Resolved]
